FAERS Safety Report 10203323 (Version 2)
Quarter: 2014Q2

REPORT INFORMATION
  Report Type: Spontaneous
  Country: GB (occurrence: GB)
  Receive Date: 20140529
  Receipt Date: 20140529
  Transmission Date: 20141212
  Serious: Yes (Hospitalization, Other)
  Sender: FDA-Public Use
  Company Number: PHFR2014GB002930

PATIENT
  Age: 54 Year
  Sex: Male

DRUGS (5)
  1. CLOZARIL [Suspect]
     Indication: SCHIZOPHRENIA
     Dosage: 200 MG, DAILY
     Route: 048
     Dates: start: 20021124, end: 20140415
  2. CLOZARIL [Suspect]
     Indication: SCHIZOPHRENIA, PARANOID TYPE
     Dosage: 200 MG DAILY
     Route: 048
     Dates: start: 20140422
  3. DIAZEPAM [Concomitant]
     Indication: ANXIETY
     Dosage: 5 MG, BID
     Route: 048
  4. DIAZEPAM [Concomitant]
     Indication: AGITATION
  5. PROMAZINE [Concomitant]
     Indication: AGITATION
     Dosage: 150 MG, BID
     Route: 048
     Dates: end: 20140415

REACTIONS (7)
  - Appendicitis perforated [Recovered/Resolved]
  - Intestinal obstruction [Recovered/Resolved]
  - Ileus paralytic [Recovered/Resolved]
  - Schizophrenia, paranoid type [Recovered/Resolved]
  - White blood cell count increased [Recovered/Resolved]
  - Neutrophil count increased [Not Recovered/Not Resolved]
  - Platelet count increased [Unknown]
